FAERS Safety Report 8161472-2 (Version None)
Quarter: 2012Q1

REPORT INFORMATION
  Report Type: 
  Country: None (occurrence: None)
  Receive Date: 20120224
  Receipt Date: 20110801
  Transmission Date: 20120608
  Serious: Yes (Other)
  Sender: FDA-Public Use
  Company Number: US-MYLANLABS-2011S1016016

PATIENT
  Sex: Male

DRUGS (2)
  1. ALPRAZOLAM [Suspect]
  2. ALPRAZOLAM [Suspect]

REACTIONS (2)
  - DRUG INEFFECTIVE [None]
  - DEPENDENCE [None]
